FAERS Safety Report 5259277-5 (Version None)
Quarter: 2007Q1

REPORT INFORMATION
  Report Type: 
  Country: None (occurrence: None)
  Receive Date: 20070308
  Receipt Date: 20070302
  Transmission Date: 20070707
  Serious: Yes (Hospitalization)
  Sender: FDA-Public Use
  Company Number: JP-BOEHRINGER INGELHEIM PHARMACEUTICALS, INC.-2007-BP-03029NB

PATIENT

DRUGS (4)
  1. MOBIC [Suspect]
     Route: 048
  2. NORVASC [Concomitant]
     Route: 048
  3. BLOPRESS [Concomitant]
     Route: 048
  4. THEO-DUR [Concomitant]
     Route: 048

REACTIONS (1)
  - NEPHROTIC SYNDROME [None]
